FAERS Safety Report 15182691 (Version 1)
Quarter: 2018Q3

REPORT INFORMATION
  Report Type: Spontaneous
  Country: FR (occurrence: FR)
  Receive Date: 20180723
  Receipt Date: 20180723
  Transmission Date: 20181010
  Serious: Yes (Other)
  Sender: FDA-Public Use
  Company Number: FR-GLAXOSMITHKLINE-FR2018128326

PATIENT
  Age: 72 Year
  Sex: Female

DRUGS (11)
  1. ESOMEPRAZOLE MAGNESIUM. [Suspect]
     Active Substance: ESOMEPRAZOLE MAGNESIUM
     Indication: PRODUCT USED FOR UNKNOWN INDICATION
     Dosage: 20.0MG UNKNOWN
     Route: 048
     Dates: start: 20180516, end: 20180522
  2. CEFAZOLIN [Suspect]
     Active Substance: CEFAZOLIN
     Dosage: UNK
  3. PROPOFOL LIPURO [Suspect]
     Active Substance: PROPOFOL
     Indication: PRODUCT USED FOR UNKNOWN INDICATION
     Dosage: 374 MG, UNK
     Route: 042
     Dates: start: 20180517, end: 20180517
  4. KEPPRA [Suspect]
     Active Substance: LEVETIRACETAM
     Indication: PRODUCT USED FOR UNKNOWN INDICATION
     Dosage: 1000 MG, QD
     Route: 048
  5. EPHEDRINE HYDROCHLORIDE [Suspect]
     Active Substance: EPHEDRINE HYDROCHLORIDE
     Indication: PRODUCT USED FOR UNKNOWN INDICATION
     Dosage: 6 MG, QD
     Route: 042
     Dates: start: 20180517, end: 20180517
  6. LANSOPRAZOLE. [Suspect]
     Active Substance: LANSOPRAZOLE
     Indication: PRODUCT USED FOR UNKNOWN INDICATION
     Dosage: 30 MG, QD
     Route: 048
     Dates: end: 20180516
  7. ZESTORETIC [Suspect]
     Active Substance: HYDROCHLOROTHIAZIDE\LISINOPRIL
     Indication: HYPERTENSION
     Dosage: 1 DF, QD
     Route: 048
     Dates: end: 20180521
  8. PERFALGAN [Suspect]
     Active Substance: ACETAMINOPHEN
     Indication: PRODUCT USED FOR UNKNOWN INDICATION
     Dosage: 1.0G UNKNOWN
     Route: 041
     Dates: start: 20180517, end: 20180517
  9. REMIFENTANIL HYDROCHLORIDE. [Suspect]
     Active Substance: REMIFENTANIL HYDROCHLORIDE
     Indication: GENERAL ANAESTHESIA
     Dosage: 472.0UG/INHAL
     Route: 042
     Dates: start: 20180517, end: 20180517
  10. INEXIUM [Suspect]
     Active Substance: ESOMEPRAZOLE
     Indication: PRODUCT USED FOR UNKNOWN INDICATION
     Dosage: 20 MG, QD
     Route: 048
     Dates: start: 20180516, end: 20180522
  11. CEFAZOLIN [Suspect]
     Active Substance: CEFAZOLIN
     Indication: ANTIBIOTIC PROPHYLAXIS
     Dosage: 2 G, QD
     Route: 042
     Dates: start: 20180517, end: 20180517

REACTIONS (1)
  - Thrombocytopenia [Recovering/Resolving]

NARRATIVE: CASE EVENT DATE: 20180518
